FAERS Safety Report 9859316 (Version 1)
Quarter: 2014Q1

REPORT INFORMATION
  Report Type: Spontaneous
  Country: US (occurrence: US)
  Receive Date: 20140131
  Receipt Date: 20140131
  Transmission Date: 20141002
  Serious: No
  Sender: FDA-Public Use
  Company Number: US-PFIZER INC-2014027144

PATIENT
  Age: 50 Year
  Sex: Female
  Weight: 57 kg

DRUGS (2)
  1. GABAPENTIN [Suspect]
     Indication: PROCEDURAL PAIN
     Dosage: UNK, EVERY SIX HOURS
     Dates: end: 2013
  2. VALIUM [Suspect]
     Indication: PROCEDURAL PAIN
     Dosage: UNK, EVERY SIX HOURS
     Dates: end: 2013

REACTIONS (2)
  - Off label use [Unknown]
  - Drug ineffective for unapproved indication [Unknown]
